FAERS Safety Report 6386580-8 (Version None)
Quarter: 2009Q4

REPORT INFORMATION
  Report Type: 
  Country: None (occurrence: None)
  Receive Date: 20091002
  Receipt Date: 20090417
  Transmission Date: 20100525
  Serious: No
  Sender: FDA-Public Use
  Company Number: US-ASTRAZENECA-2009UW09784

PATIENT
  Age: 61 Year
  Sex: Female
  Weight: 83 kg

DRUGS (10)
  1. ARIMIDEX [Suspect]
     Indication: BREAST CANCER
     Route: 048
  2. CRESTOR [Suspect]
     Route: 048
  3. MICARDIS [Concomitant]
     Indication: HYPERTENSION
  4. CARDEVILOL [Concomitant]
     Indication: HYPERTENSION
  5. I CAPS [Concomitant]
     Indication: EYE DISORDER
  6. METANX [Concomitant]
     Indication: EYE DISORDER
  7. OSCAL [Concomitant]
     Indication: PROPHYLAXIS
  8. LEVOXYL [Concomitant]
     Indication: HYPOTHYROIDISM
  9. SINGULAIR [Concomitant]
     Indication: MULTIPLE ALLERGIES
  10. ZYRTEC [Concomitant]
     Indication: MULTIPLE ALLERGIES

REACTIONS (2)
  - BACK PAIN [None]
  - HEADACHE [None]
